FAERS Safety Report 9840762 (Version 1)
Quarter: 2013Q4

REPORT INFORMATION
  Report Type: Spontaneous
  Country: US (occurrence: None)
  Receive Date: 20131211
  Receipt Date: 20131211
  Transmission Date: 20140711
  Serious: Yes (Disabling, Other)
  Sender: FDA-Public Use
  Company Number: ALL1-2012-06474

PATIENT
  Age: 8 Year
  Sex: Male
  Weight: 28.58 kg

DRUGS (2)
  1. VYVANSE [Suspect]
     Indication: ATTENTION DEFICIT/HYPERACTIVITY DISORDER
     Dosage: 1X/DAY
     Route: 048
     Dates: start: 20121213, end: 20121214
  2. OTHER ANTIHISTAMINES FOR SYSTEMIC USE TABLET [Concomitant]

REACTIONS (14)
  - Psychotic behaviour [None]
  - Hallucination, visual [None]
  - Depression [None]
  - Anxiety [None]
  - Tic [None]
  - Lethargy [None]
  - Impulsive behaviour [None]
  - Moaning [None]
  - Negativism [None]
  - Mood altered [None]
  - Sleep disorder [None]
  - Decreased appetite [None]
  - Tremor [None]
  - Dry mouth [None]
